FAERS Safety Report 21727604 (Version 1)
Quarter: 2022Q4

REPORT INFORMATION
  Report Type: Spontaneous
  Country: US (occurrence: None)
  Receive Date: 20221213
  Receipt Date: 20221213
  Transmission Date: 20230112
  Serious: Yes (Hospitalization, Other)
  Sender: FDA-Public Use
  Company Number: None

PATIENT
  Age: 85 Year
  Sex: Female
  Weight: 61.4 kg

DRUGS (1)
  1. FERAHEME [Suspect]
     Active Substance: FERUMOXYTOL NON-STOICHIOMETRIC MAGNETITE
     Indication: Iron deficiency anaemia
     Dosage: OTHER FREQUENCY : 2 DOSES 1 WK APART;?
     Route: 042
     Dates: start: 20221130, end: 20221207

REACTIONS (5)
  - Infusion related reaction [None]
  - Dyspnoea [None]
  - Oxygen saturation decreased [None]
  - Hypotension [None]
  - Hyperhidrosis [None]

NARRATIVE: CASE EVENT DATE: 20221207
